FAERS Safety Report 10837255 (Version 1)
Quarter: 2015Q1

REPORT INFORMATION
  Report Type: Spontaneous
  Country: US (occurrence: None)
  Receive Date: 20150218
  Receipt Date: 20150218
  Transmission Date: 20150721
  Serious: No
  Sender: FDA-Public Use
  Company Number: HA15-025-AE

PATIENT
  Sex: Female
  Weight: 81.65 kg

DRUGS (1)
  1. IBUPROFEN. [Suspect]
     Active Substance: IBUPROFEN
     Indication: PAIN
     Dosage: TAB AS NEED/ ORAL
     Route: 048
     Dates: end: 201501

REACTIONS (11)
  - Abdominal pain upper [None]
  - Contusion [None]
  - Feeling abnormal [None]
  - Visual acuity reduced [None]
  - Hyperhidrosis [None]
  - Dyspnoea [None]
  - Pain [None]
  - Skin swelling [None]
  - Erythema [None]
  - Disorientation [None]
  - Thermal burn [None]
